FAERS Safety Report 7605557-5 (Version None)
Quarter: 2011Q3

REPORT INFORMATION
  Report Type: 
  Country: None (occurrence: None)
  Receive Date: 20110713
  Receipt Date: 20110628
  Transmission Date: 20111222
  Serious: Yes (Disabling, Other)
  Sender: FDA-Public Use
  Company Number: BR-BAYER-2011-051726

PATIENT
  Sex: Female

DRUGS (6)
  1. QUETIAPINE [Concomitant]
     Dosage: UNK
     Dates: start: 20110626, end: 20110629
  2. CLONAZEPAM [Concomitant]
     Indication: INSOMNIA
     Dosage: 1 DF, QD
     Route: 048
     Dates: start: 19860101
  3. LITHIUM CARBONATE [Concomitant]
     Dosage: 3 DF, QD
     Route: 048
  4. CARBAMAZEPINA [Concomitant]
     Indication: BIPOLAR DISORDER
     Dosage: 2 DF, QD
     Route: 048
     Dates: start: 19860101
  5. BETASERON [Suspect]
     Indication: MULTIPLE SCLEROSIS
     Dosage: 8 MIU, QOD
     Route: 058
     Dates: start: 20100201
  6. LITHIUM CARBONATE [Concomitant]
     Indication: BIPOLAR DISORDER
     Dosage: 4 DF, QD
     Route: 048
     Dates: start: 19860101

REACTIONS (7)
  - ABASIA [None]
  - GAIT DISTURBANCE [None]
  - INJECTION SITE INFECTION [None]
  - FEBRILE INFECTION [None]
  - MULTIPLE SCLEROSIS [None]
  - PAIN [None]
  - INJECTION SITE NECROSIS [None]
